FAERS Safety Report 8213041-3 (Version None)
Quarter: 2012Q1

REPORT INFORMATION
  Report Type: 
  Country: None (occurrence: None)
  Receive Date: 20120315
  Receipt Date: 20120307
  Transmission Date: 20120608
  Serious: Yes (Other)
  Sender: FDA-Public Use
  Company Number: US-JNJFOC-20101205389

PATIENT
  Sex: Male

DRUGS (24)
  1. PREDNISONE TAB [Suspect]
     Dosage: PREDNISONE TAPER
     Route: 048
     Dates: start: 20101202, end: 20101203
  2. IBUPROFEN (ADVIL) [Concomitant]
     Indication: PAIN
     Route: 048
     Dates: start: 20111101
  3. CALCIUM [Concomitant]
     Indication: MEDICAL DIET
     Route: 048
     Dates: start: 20080101
  4. LUPRON [Concomitant]
     Indication: HORMONE THERAPY
     Route: 030
     Dates: start: 20080929
  5. LUPRON [Concomitant]
     Route: 030
     Dates: start: 20090821
  6. XL184 [Concomitant]
     Indication: CHEMOTHERAPY
     Route: 048
     Dates: start: 20111101, end: 20111115
  7. TAMSULOSIN HCL [Concomitant]
     Indication: DYSURIA
     Route: 048
     Dates: start: 20060101
  8. LUPRON [Concomitant]
     Route: 030
     Dates: start: 20080929
  9. LISINOPRIL [Concomitant]
     Indication: HYPERTENSION
     Route: 048
     Dates: start: 20090918
  10. ABIRATERONE ACETATE [Suspect]
     Route: 048
  11. PREDNISONE TAB [Suspect]
     Dosage: PREDNISONE TAPER
     Route: 048
     Dates: start: 20101205, end: 20101206
  12. SIMVASTATIN [Concomitant]
     Indication: HYPERCHOLESTEROLAEMIA
     Route: 048
     Dates: start: 20070101
  13. VITAMIN D [Concomitant]
     Indication: VITAMIN SUPPLEMENTATION
     Route: 048
     Dates: start: 20091211
  14. PREDNISONE TAB [Suspect]
     Dosage: PREDNISONE TAPER
     Route: 048
     Dates: start: 20101204, end: 20101205
  15. ABIRATERONE ACETATE [Suspect]
     Indication: PROSTATE CANCER METASTATIC
     Route: 048
     Dates: start: 20090821, end: 20101129
  16. PREDNISONE TAB [Suspect]
     Dosage: PREDNISONE TAPER
     Route: 048
     Dates: start: 20101206
  17. PREDNISONE TAB [Suspect]
     Route: 048
     Dates: start: 20090822, end: 20101130
  18. FISH OIL [Concomitant]
     Indication: MEDICAL DIET
     Route: 065
     Dates: start: 20091009
  19. MULTI-VITAMINS [Concomitant]
     Indication: VITAMIN SUPPLEMENTATION
     Route: 048
  20. PREDNISONE TAB [Suspect]
     Indication: PROSTATE CANCER METASTATIC
     Dosage: STRESS DOSE
     Route: 048
     Dates: start: 20101201, end: 20101202
  21. PREDNISONE TAB [Suspect]
     Dosage: PREDNISONE TAPER
     Route: 048
     Dates: start: 20101203, end: 20101204
  22. LUPRON [Concomitant]
     Indication: PROSTATE CANCER
     Route: 030
     Dates: start: 20090821
  23. ZOLEDRONIC ACID [Concomitant]
     Indication: METASTASES TO BONE
     Route: 042
     Dates: start: 20090918
  24. TRAMADOL HCL [Concomitant]
     Indication: PAIN
     Route: 048
     Dates: start: 20111101

REACTIONS (4)
  - HYPOKALAEMIA [None]
  - PAIN IN EXTREMITY [None]
  - MUSCULOSKELETAL CHEST PAIN [None]
  - DIZZINESS [None]
